FAERS Safety Report 9636344 (Version 3)
Quarter: 2013Q4

REPORT INFORMATION
  Report Type: Report from Study
  Country: DE (occurrence: DE)
  Receive Date: 20131021
  Receipt Date: 20131223
  Transmission Date: 20140711
  Serious: Yes (Hospitalization)
  Sender: FDA-Public Use
  Company Number: DE-ROCHE-1290692

PATIENT
  Age: 60 Year
  Sex: Female
  Weight: 71 kg

DRUGS (7)
  1. PERTUZUMAB [Suspect]
     Indication: BREAST CANCER
     Dosage: LOADING DOSE
     Route: 042
     Dates: start: 20130409
  2. PERTUZUMAB [Suspect]
     Dosage: MAINTENANCE DOSE?DATE OF LAST DOSE PRIOR TO SAE: 01/OCT/2013
     Route: 042
     Dates: start: 20130430
  3. TRASTUZUMAB [Suspect]
     Indication: BREAST CANCER
     Dosage: LOADING DOSE
     Route: 042
     Dates: start: 20130409
  4. TRASTUZUMAB [Suspect]
     Dosage: MAINTENANCE DOSE: 6 MG/KG?DATE OF LAST DOSE PRIOR TO SAE: 01/OCT/2013
     Route: 042
     Dates: start: 20130430
  5. EPIRUBICIN [Suspect]
     Indication: BREAST CANCER
     Dosage: DATE OF LAST DOSE PRIOR TO SAE: 01/OCT/2013
     Route: 042
     Dates: start: 20130723
  6. CYCLOPHOSPHAMIDE [Suspect]
     Indication: BREAST CANCER
     Dosage: DATE OF LAST DOSE PRIOR TO SAE: 01/OCT/2013
     Route: 042
     Dates: start: 20130723
  7. NAB-PACLITAXEL [Suspect]
     Indication: BREAST CANCER
     Route: 042
     Dates: start: 20130409, end: 20130716

REACTIONS (2)
  - General physical health deterioration [Recovered/Resolved]
  - Neutropenia [Recovered/Resolved]
